FAERS Safety Report 23700580 (Version 10)
Quarter: 2025Q3

REPORT INFORMATION
  Report Type: Report from Study
  Country: CA (occurrence: CA)
  Receive Date: 20240403
  Receipt Date: 20250924
  Transmission Date: 20251021
  Serious: Yes (Hospitalization, Other)
  Sender: TAKEDA
  Company Number: CA-TAKEDA-2018TUS036530

PATIENT
  Age: 71 Year
  Sex: Female

DRUGS (47)
  1. VEDOLIZUMAB [Suspect]
     Active Substance: VEDOLIZUMAB
     Indication: Crohn^s disease
  2. VEDOLIZUMAB [Suspect]
     Active Substance: VEDOLIZUMAB
  3. VEDOLIZUMAB [Suspect]
     Active Substance: VEDOLIZUMAB
  4. VEDOLIZUMAB [Suspect]
     Active Substance: VEDOLIZUMAB
  5. VEDOLIZUMAB [Suspect]
     Active Substance: VEDOLIZUMAB
  6. VEDOLIZUMAB [Suspect]
     Active Substance: VEDOLIZUMAB
  7. VEDOLIZUMAB [Suspect]
     Active Substance: VEDOLIZUMAB
  8. VEDOLIZUMAB [Suspect]
     Active Substance: VEDOLIZUMAB
  9. VEDOLIZUMAB [Suspect]
     Active Substance: VEDOLIZUMAB
  10. VEDOLIZUMAB [Suspect]
     Active Substance: VEDOLIZUMAB
  11. VEDOLIZUMAB [Suspect]
     Active Substance: VEDOLIZUMAB
  12. VEDOLIZUMAB [Suspect]
     Active Substance: VEDOLIZUMAB
  13. VEDOLIZUMAB [Suspect]
     Active Substance: VEDOLIZUMAB
  14. PENTASA [Concomitant]
     Active Substance: MESALAMINE
  15. CYANOCOBALAMIN [Concomitant]
     Active Substance: CYANOCOBALAMIN
  16. OMEPRAZOLE [Concomitant]
     Active Substance: OMEPRAZOLE
  17. VITAMIN D [Concomitant]
     Active Substance: VITAMIN D NOS
  18. METOPROLOL [Concomitant]
     Active Substance: METOPROLOL
  19. CALCIUM [Concomitant]
     Active Substance: CALCIUM
  20. ROSUVASTATIN [Concomitant]
     Active Substance: ROSUVASTATIN
  21. CYCLOBENZAPRINE [Concomitant]
     Active Substance: CYCLOBENZAPRINE
  22. FUROSEMIDE [Concomitant]
     Active Substance: FUROSEMIDE
  23. Pms ismn [Concomitant]
  24. ASPIRIN [Concomitant]
     Active Substance: ASPIRIN
  25. BETAHISTINE [Concomitant]
     Active Substance: BETAHISTINE
  26. ATROVENT [Concomitant]
     Active Substance: IPRATROPIUM BROMIDE
  27. FLOVENT [Concomitant]
     Active Substance: FLUTICASONE PROPIONATE
  28. GABAPENTIN [Concomitant]
     Active Substance: GABAPENTIN
  29. LORAZEPAM [Concomitant]
     Active Substance: LORAZEPAM
  30. OXAZEPAM [Concomitant]
     Active Substance: OXAZEPAM
  31. ALBUTEROL [Concomitant]
     Active Substance: ALBUTEROL
  32. CODEINE [Concomitant]
     Active Substance: CODEINE
  33. ONDANSETRON [Concomitant]
     Active Substance: ONDANSETRON
  34. DEXAMETHASONE [Concomitant]
     Active Substance: DEXAMETHASONE
  35. ETOPOSIDE [Concomitant]
     Active Substance: ETOPOSIDE
  36. MAGNESIUM [Concomitant]
     Active Substance: MAGNESIUM
  37. SOLIFENACIN [Concomitant]
     Active Substance: SOLIFENACIN
  38. SUCRALFATE [Concomitant]
     Active Substance: SUCRALFATE
  39. METOCLOPRAMIDE [Concomitant]
     Active Substance: METOCLOPRAMIDE
  40. DICLOFENAC DIETHYLAMINE [Concomitant]
     Active Substance: DICLOFENAC DIETHYLAMINE
     Route: 061
  41. ZOPICLONE [Concomitant]
     Active Substance: ZOPICLONE
  42. POLYETHYLENE GLYCOL 3350 [Concomitant]
     Active Substance: POLYETHYLENE GLYCOL 3350
     Dosage: 17 GRAM, BID
  43. POLYETHYLENE GLYCOL 3350 [Concomitant]
     Active Substance: POLYETHYLENE GLYCOL 3350
  44. SENNOSIDES [Concomitant]
     Active Substance: SENNOSIDES
     Dosage: 8.6 MILLIGRAM, BID
  45. MORPHINE [Concomitant]
     Active Substance: MORPHINE
  46. MORPHINE [Concomitant]
     Active Substance: MORPHINE
     Dosage: 5 MILLIGRAM, BID
     Dates: start: 20250825
  47. SUCRALFATE [Concomitant]
     Active Substance: SUCRALFATE
     Dosage: 5 MILLILITER, TID
     Dates: start: 20250826

REACTIONS (14)
  - Hypotension [Recovering/Resolving]
  - Tachycardia [Recovering/Resolving]
  - Dyspnoea exertional [Recovering/Resolving]
  - Lung neoplasm malignant [Unknown]
  - Cough [Recovering/Resolving]
  - Pyrexia [Recovering/Resolving]
  - Body temperature decreased [Unknown]
  - Respiratory rate increased [Recovering/Resolving]
  - Blood pressure fluctuation [Unknown]
  - Chest pain [Unknown]
  - Heart rate increased [Unknown]
  - Blood pressure increased [Unknown]
  - Nasal congestion [Recovering/Resolving]
  - Oxygen saturation decreased [Unknown]

NARRATIVE: CASE EVENT DATE: 20240317
